FAERS Safety Report 25265671 (Version 1)
Quarter: 2025Q2

REPORT INFORMATION
  Report Type: Spontaneous
  Country: US (occurrence: US)
  Receive Date: 20250503
  Receipt Date: 20250503
  Transmission Date: 20250716
  Serious: No
  Sender: MANKIND PHARMA
  Company Number: US-MankindUS-000319

PATIENT
  Age: 78 Year
  Sex: Female
  Weight: 83.91 kg

DRUGS (5)
  1. NITROFURANTOIN MONOHYDRATE MACROCRYSTALS [Suspect]
     Active Substance: NITROFURANTOIN\NITROFURANTOIN MONOHYDRATE
     Indication: Urinary tract infection
     Route: 048
     Dates: start: 20250113, end: 20250120
  2. XANAX [Concomitant]
     Active Substance: ALPRAZOLAM
     Dosage: 4 MGS/DAY
  3. COREG [Concomitant]
     Active Substance: CARVEDILOL
     Dosage: 20 MGS/DAY
  4. LUMIGAN [Concomitant]
     Active Substance: BIMATOPROST
     Indication: Glaucoma
  5. COMBIGAN [Concomitant]
     Active Substance: BRIMONIDINE TARTRATE\TIMOLOL MALEATE
     Indication: Glaucoma

REACTIONS (4)
  - Product substitution issue [Unknown]
  - Nausea [Not Recovered/Not Resolved]
  - Diarrhoea [Not Recovered/Not Resolved]
  - Drug ineffective [Unknown]

NARRATIVE: CASE EVENT DATE: 20250101
